FAERS Safety Report 10660489 (Version 1)
Quarter: 2014Q4

REPORT INFORMATION
  Report Type: Spontaneous
  Country: US (occurrence: US)
  Receive Date: 20141217
  Receipt Date: 20141217
  Transmission Date: 20150529
  Serious: No
  Sender: FDA-Public Use
  Company Number: US-GLAXOSMITHKLINE-A1084937A

PATIENT

DRUGS (1)
  1. VOTRIENT [Suspect]
     Active Substance: PAZOPANIB HYDROCHLORIDE
     Indication: CHONDROSARCOMA

REACTIONS (5)
  - Vomiting [Unknown]
  - Headache [Unknown]
  - Hypertension [Unknown]
  - Dyspnoea [Unknown]
  - Abnormal sensation in eye [Unknown]
